FAERS Safety Report 8957653 (Version 3)
Quarter: 2012Q4

REPORT INFORMATION
  Report Type: 
  Country: US (occurrence: US)
  Receive Date: 20121210
  Receipt Date: 20121226
  Transmission Date: 20130627
  Serious: Yes (Other)
  Sender: FDA-Public Use
  Company Number: US-PFIZER INC-2012308875

PATIENT
  Sex: Female

DRUGS (4)
  1. GABAPENTIN [Suspect]
     Dosage: UNK
  2. LYRICA [Suspect]
     Indication: BACK DISORDER
     Dosage: 100mg one capsule in morning and 100mg two capsules at night
     Route: 048
  3. LYRICA [Suspect]
     Dosage: 400 mg, 1x/day
     Route: 048
  4. METFORMIN HCL [Suspect]
     Indication: INSULIN-DEPENDENT DIABETES MELLITUS
     Dosage: 1000 mg, 2x/day

REACTIONS (6)
  - Sensory loss [Unknown]
  - Drug ineffective [Unknown]
  - Neuropathy peripheral [Unknown]
  - Pain [Unknown]
  - Hypoaesthesia [Unknown]
  - Head discomfort [Unknown]
